FAERS Safety Report 21587349 (Version 1)
Quarter: 2022Q4

REPORT INFORMATION
  Report Type: Report from Study
  Country: BR (occurrence: BR)
  Receive Date: 20221114
  Receipt Date: 20221114
  Transmission Date: 20230112
  Serious: Yes (Other)
  Sender: FDA-Public Use
  Company Number: BR-JNJFOC-20221119723

PATIENT
  Age: 3 Decade
  Sex: Female
  Weight: 51 kg

DRUGS (1)
  1. INFLIXIMAB [Suspect]
     Active Substance: INFLIXIMAB
     Indication: Crohn^s disease
     Route: 041
     Dates: start: 202110, end: 20220318

REACTIONS (7)
  - Tuberculosis [Unknown]
  - Infusion related reaction [Unknown]
  - Dyspnoea [Unknown]
  - Cough [Unknown]
  - Vomiting [Unknown]
  - Rash erythematous [Unknown]
  - Off label use [Unknown]
